FAERS Safety Report 7742204-6 (Version None)
Quarter: 2011Q3

REPORT INFORMATION
  Report Type: 
  Country: None (occurrence: None)
  Receive Date: 20110907
  Receipt Date: 20110907
  Transmission Date: 20111222
  Serious: Yes (Hospitalization)
  Sender: FDA-Public Use
  Company Number: None

PATIENT
  Age: 32 Year
  Sex: Female
  Weight: 80.2867 kg

DRUGS (9)
  1. TEMODAR [Concomitant]
  2. FOLIC ACID [Concomitant]
  3. PROMETHAZINE [Concomitant]
  4. MEPRON [Concomitant]
  5. 5-AMINOLEVULINIC ACID (5-ALA) [Suspect]
     Indication: ANAPLASTIC ASTROCYTOMA
     Dosage: 840MG, QD, ORAL
     Route: 048
     Dates: start: 20110531
  6. ATIVAN [Concomitant]
  7. ZOFRAN [Concomitant]
  8. MELOXICAM [Concomitant]
  9. KEPPRA [Concomitant]

REACTIONS (2)
  - SCAB [None]
  - POSTOPERATIVE WOUND INFECTION [None]
